FAERS Safety Report 14101737 (Version 1)
Quarter: 2017Q4

REPORT INFORMATION
  Report Type: Spontaneous
  Country: US (occurrence: US)
  Receive Date: 20171018
  Receipt Date: 20171018
  Transmission Date: 20180321
  Serious: Yes (Hospitalization, Other)
  Sender: FDA-Public Use
  Company Number: US-ALVOGEN-2017-ALVOGEN-093771

PATIENT
  Age: 83 Year
  Sex: Female

DRUGS (6)
  1. INSULIN DETEMIR [Concomitant]
     Active Substance: INSULIN DETEMIR
     Indication: DIABETES MELLITUS
  2. DIGOXIN. [Interacting]
     Active Substance: DIGOXIN
     Indication: HEART RATE IRREGULAR
     Route: 048
  3. BUDESONIDE/FORMOTEROL FUMARATE [Concomitant]
     Indication: PRODUCT USED FOR UNKNOWN INDICATION
  4. ATENOLOL. [Interacting]
     Active Substance: ATENOLOL
     Indication: BLOOD PRESSURE ABNORMAL
     Route: 048
  5. DIGOXIN. [Interacting]
     Active Substance: DIGOXIN
     Indication: PULMONARY VALVE INCOMPETENCE
     Route: 048
  6. ATENOLOL. [Suspect]
     Active Substance: ATENOLOL
     Indication: PALPITATIONS
     Route: 048

REACTIONS (3)
  - Drug interaction [Unknown]
  - Diabetes mellitus [Unknown]
  - Vomiting [Unknown]

NARRATIVE: CASE EVENT DATE: 1996
